FAERS Safety Report 9652067 (Version 1)
Quarter: 2013Q4

REPORT INFORMATION
  Report Type: Spontaneous
  Country: None (occurrence: None)
  Receive Date: 20131025
  Receipt Date: 20131025
  Transmission Date: 20140711
  Serious: Yes (Hospitalization)
  Sender: FDA-Public Use
  Company Number: 151891

PATIENT
  Sex: Male

DRUGS (1)
  1. DOBUTAMINE [Suspect]
     Dosage: 5UG/KG/MIN
     Route: 042

REACTIONS (5)
  - Cardiogenic shock [None]
  - Mitral valve disease [None]
  - Haemodynamic instability [None]
  - Blood pressure decreased [None]
  - Cardiac murmur [None]
